FAERS Safety Report 10358071 (Version 5)
Quarter: 2015Q2

REPORT INFORMATION
  Report Type: Spontaneous
  Country: US (occurrence: US)
  Receive Date: 20140801
  Receipt Date: 20150407
  Transmission Date: 20150821
  Serious: Yes (Hospitalization)
  Sender: FDA-Public Use
  Company Number: US-009507513-1407USA011998

PATIENT
  Sex: Male

DRUGS (2)
  1. PROSCAR [Suspect]
     Active Substance: FINASTERIDE
     Indication: PROSTATOMEGALY
     Dosage: 5 MG, UNK
     Route: 048
     Dates: start: 20060111, end: 20060605
  2. FINASTERIDE. [Suspect]
     Active Substance: FINASTERIDE
     Indication: PROSTATOMEGALY
     Dosage: 5 MG, UNK
     Route: 048
     Dates: start: 20060911, end: 20100103

REACTIONS (17)
  - Haematuria [Unknown]
  - Dyspnoea exertional [Unknown]
  - Nasopharyngitis [Unknown]
  - Kidney fibrosis [Unknown]
  - Loss of libido [Unknown]
  - Cholelithiasis [Unknown]
  - Sexual dysfunction [Not Recovered/Not Resolved]
  - Pneumonia [Recovering/Resolving]
  - Pneumonia [Unknown]
  - Chronic obstructive pulmonary disease [Unknown]
  - Dyslipidaemia [Unknown]
  - Chest pain [Unknown]
  - Anaemia [Unknown]
  - Erectile dysfunction [Not Recovered/Not Resolved]
  - Hypertension [Unknown]
  - Pyrexia [Unknown]
  - Proteinuria [Unknown]

NARRATIVE: CASE EVENT DATE: 200612
